FAERS Safety Report 6620629-X (Version None)
Quarter: 2010Q1

REPORT INFORMATION
  Report Type: 
  Country: None (occurrence: None)
  Receive Date: 20100309
  Receipt Date: 20100224
  Transmission Date: 20100710
  Serious: Yes (Hospitalization, Other)
  Sender: FDA-Public Use
  Company Number: US-PFIZER INC-2010025335

PATIENT
  Sex: Female
  Weight: 74.83 kg

DRUGS (6)
  1. CHANTIX [Suspect]
     Indication: SMOKING CESSATION THERAPY
     Dosage: UNK
  2. LORTAB [Suspect]
     Indication: PAIN
     Dosage: UNIT DOSE: 10;
  3. OXYCODONE [Suspect]
     Indication: PAIN
     Dosage: 20 MG, UNK
  4. CYMBALTA [Concomitant]
     Indication: DEPRESSION
     Dosage: UNK
  5. VISTARIL [Concomitant]
     Indication: ANXIETY
     Dosage: UNK
  6. KLONOPIN [Concomitant]
     Indication: ANXIETY
     Dosage: UNK

REACTIONS (6)
  - AGITATION [None]
  - ANGER [None]
  - HOSTILITY [None]
  - OVERDOSE [None]
  - SUICIDAL BEHAVIOUR [None]
  - SUICIDE ATTEMPT [None]
